FAERS Safety Report 4812267-6 (Version None)
Quarter: 2005Q4

REPORT INFORMATION
  Report Type: 
  Country: None (occurrence: None)
  Receive Date: 20051028
  Receipt Date: 20040929
  Transmission Date: 20060501
  Serious: No
  Sender: FDA-Public Use
  Company Number: US-GLAXOSMITHKLINE-A0527790A

PATIENT

DRUGS (1)
  1. ADVAIR DISKUS 100/50 [Suspect]
     Route: 055

REACTIONS (2)
  - DRUG ADMINISTRATION ERROR [None]
  - PHARMACEUTICAL PRODUCT COMPLAINT [None]
